FAERS Safety Report 21309741 (Version 1)
Quarter: 2022Q3

REPORT INFORMATION
  Report Type: Report from Study
  Country: CA (occurrence: CA)
  Receive Date: 20220908
  Receipt Date: 20220908
  Transmission Date: 20221027
  Serious: Yes (Other)
  Sender: FDA-Public Use
  Company Number: CA-ABBVIE-22K-028-4531095-00

PATIENT
  Sex: Male

DRUGS (1)
  1. GLECAPREVIR\PIBRENTASVIR [Suspect]
     Active Substance: GLECAPREVIR\PIBRENTASVIR
     Indication: Chronic hepatitis C
     Route: 048
     Dates: start: 20220715

REACTIONS (7)
  - Fungal skin infection [Unknown]
  - Vomiting [Unknown]
  - Pain [Unknown]
  - Illness [Unknown]
  - Hepatomegaly [Unknown]
  - Enzyme level increased [Unknown]
  - Chronic hepatitis C [Unknown]

NARRATIVE: CASE EVENT DATE: 20220101
